FAERS Safety Report 9529890 (Version 3)
Quarter: 2013Q4

REPORT INFORMATION
  Report Type: Report from Study
  Country: US (occurrence: US)
  Receive Date: 20130917
  Receipt Date: 20131022
  Transmission Date: 20140711
  Serious: Yes (Life-Threatening)
  Sender: FDA-Public Use
  Company Number: US-ACTELION-A-US2013-86437

PATIENT
  Age: 79 Year
  Sex: Male

DRUGS (9)
  1. TRACLEER [Suspect]
     Indication: PULMONARY ARTERIAL HYPERTENSION
     Dosage: 125 MG, BID
     Route: 048
     Dates: start: 201305, end: 20130620
  2. TRACLEER [Suspect]
     Dosage: 62.5 MG, BID
     Route: 048
     Dates: start: 201304, end: 201305
  3. TRACLEER [Suspect]
     Dosage: 62.5 MG BID
     Route: 048
     Dates: start: 201308, end: 20130902
  4. SILDENAFIL [Concomitant]
  5. FUROSEMIDE [Concomitant]
  6. NORVASC [Concomitant]
  7. METOPROLOL [Concomitant]
  8. SPIRONOLACTONE [Concomitant]
  9. TRANDOLAPRIL [Concomitant]

REACTIONS (7)
  - Paranasal sinus hypersecretion [Recovered/Resolved]
  - Angioedema [Recovered/Resolved]
  - Swollen tongue [Recovered/Resolved]
  - Lip swelling [Recovered/Resolved]
  - Oedema mouth [Recovered/Resolved]
  - Gingival swelling [Recovered/Resolved]
  - Swelling face [Recovered/Resolved]
